FAERS Safety Report 4506532-X (Version None)
Quarter: 2004Q4

REPORT INFORMATION
  Report Type: 
  Country: None (occurrence: None)
  Receive Date: 20041122
  Receipt Date: 20041118
  Transmission Date: 20050328
  Serious: Yes (Hospitalization)
  Sender: FDA-Public Use
  Company Number: US-JNJFOC-20041001518

PATIENT
  Sex: Male

DRUGS (1)
  1. DURAGESIC [Suspect]
     Route: 062

REACTIONS (3)
  - PHARMACEUTICAL PRODUCT COMPLAINT [None]
  - PRURITUS [None]
  - URTICARIA [None]
